FAERS Safety Report 9631770 (Version 1)
Quarter: 2013Q4

REPORT INFORMATION
  Report Type: Spontaneous
  Country: BR (occurrence: None)
  Receive Date: 20131015
  Receipt Date: 20131015
  Transmission Date: 20140711
  Serious: Yes (Hospitalization)
  Sender: FDA-Public Use
  Company Number: 2013P1019899

PATIENT
  Age: 47 Year
  Sex: Female

DRUGS (3)
  1. NEVIRAPINE [Suspect]
     Indication: HIV INFECTION
  2. ZIDOVUDINE [Concomitant]
  3. LAMIVUDINE [Concomitant]

REACTIONS (3)
  - Hypophagia [None]
  - Renal failure [None]
  - Drug reaction with eosinophilia and systemic symptoms [None]
